FAERS Safety Report 9668020 (Version 2)
Quarter: 2013Q4

REPORT INFORMATION
  Report Type: Report from Study
  Country: JP (occurrence: JP)
  Receive Date: 20131104
  Receipt Date: 20131223
  Transmission Date: 20140711
  Serious: Yes (Death)
  Sender: FDA-Public Use
  Company Number: JP-GLAXOSMITHKLINE-B0938574A

PATIENT
  Age: 33 Year
  Sex: Male
  Weight: 77 kg

DRUGS (7)
  1. LAMICTAL [Suspect]
     Indication: SIMPLE PARTIAL SEIZURES
     Route: 048
     Dates: start: 20090728, end: 20090803
  2. LAMICTAL [Suspect]
     Indication: SIMPLE PARTIAL SEIZURES
     Route: 048
     Dates: start: 20090804, end: 20090831
  3. LAMICTAL [Suspect]
     Indication: SIMPLE PARTIAL SEIZURES
     Route: 048
     Dates: start: 20090901
  4. PHENYTOIN [Concomitant]
     Indication: SIMPLE PARTIAL SEIZURES
     Route: 048
     Dates: start: 20090728
  5. ZONISAMIDE [Concomitant]
     Indication: SIMPLE PARTIAL SEIZURES
     Route: 048
     Dates: start: 20090728
  6. NITRAZEPAM [Concomitant]
     Indication: SIMPLE PARTIAL SEIZURES
     Route: 048
     Dates: start: 20090728
  7. LEVETIRACETAM [Concomitant]
     Indication: SIMPLE PARTIAL SEIZURES
     Route: 048
     Dates: start: 20090728

REACTIONS (1)
  - Death [Fatal]
